FAERS Safety Report 20405150 (Version 2)
Quarter: 2022Q2

REPORT INFORMATION
  Report Type: Spontaneous
  Country: US (occurrence: US)
  Receive Date: 20220131
  Receipt Date: 20220419
  Transmission Date: 20220721
  Serious: No
  Sender: FDA-Public Use
  Company Number: US-PFIZER INC-202200030106

PATIENT
  Age: 80 Year
  Sex: Female

DRUGS (1)
  1. XELJANZ [Suspect]
     Active Substance: TOFACITINIB CITRATE
     Indication: Rheumatoid arthritis
     Dosage: 125 MG, 2X/DAY
     Route: 048
     Dates: start: 20211125

REACTIONS (8)
  - Wound [Recovering/Resolving]
  - Skin ulcer [Recovered/Resolved]
  - Gastrooesophageal reflux disease [Unknown]
  - Headache [Not Recovered/Not Resolved]
  - Arthralgia [Unknown]
  - Oral discomfort [Unknown]
  - Discouragement [Unknown]
  - Depressed mood [Unknown]
